FAERS Safety Report 17958766 (Version 3)
Quarter: 2020Q4

REPORT INFORMATION
  Report Type: Spontaneous
  Country: US (occurrence: US)
  Receive Date: 20200629
  Receipt Date: 20201211
  Transmission Date: 20210113
  Serious: Yes (Other)
  Sender: FDA-Public Use
  Company Number: US-PFIZER INC-2020249178

PATIENT
  Age: 63 Year
  Sex: Female

DRUGS (1)
  1. XELJANZ [Suspect]
     Active Substance: TOFACITINIB CITRATE
     Indication: RHEUMATOID ARTHRITIS
     Dosage: 5 MG, 2X/DAY
     Route: 048
     Dates: start: 2017

REACTIONS (5)
  - Hodgkin^s disease [Unknown]
  - Condition aggravated [Recovering/Resolving]
  - Depressed mood [Unknown]
  - Arthralgia [Not Recovered/Not Resolved]
  - Chondropathy [Unknown]

NARRATIVE: CASE EVENT DATE: 2020
